FAERS Safety Report 11854604 (Version 1)
Quarter: 2015Q4

REPORT INFORMATION
  Report Type: Spontaneous
  Country: CN (occurrence: CN)
  Receive Date: 20151221
  Receipt Date: 20151221
  Transmission Date: 20160305
  Serious: Yes (Other)
  Sender: FDA-Public Use
  Company Number: CN-ACCORD-036371

PATIENT
  Age: 23 Year
  Sex: Male

DRUGS (5)
  1. VINCRISTINE [Suspect]
     Active Substance: VINCRISTINE
     Indication: HISTIOCYTIC SARCOMA
  2. CYCLOPHOSPHAMIDE/CYCLOPHOSPHAMIDE MONOHYDRATE [Suspect]
     Active Substance: CYCLOPHOSPHAMIDE
     Indication: HISTIOCYTIC SARCOMA
  3. ETOPOSIDE. [Suspect]
     Active Substance: ETOPOSIDE
     Indication: HISTIOCYTIC SARCOMA
  4. DOXORUBICIN [Suspect]
     Active Substance: DOXORUBICIN
     Indication: HISTIOCYTIC SARCOMA
  5. PREDNISONE. [Suspect]
     Active Substance: PREDNISONE
     Indication: HISTIOCYTIC SARCOMA

REACTIONS (2)
  - Dry mouth [Recovered/Resolved]
  - Mucosal inflammation [Recovered/Resolved]
